FAERS Safety Report 18589317 (Version 1)
Quarter: 2020Q4

REPORT INFORMATION
  Report Type: Other
  Country: CN (occurrence: CN)
  Receive Date: 20201208
  Receipt Date: 20201208
  Transmission Date: 20210114
  Serious: Yes (Other)
  Sender: FDA-Public Use
  Company Number: CN-ROCHE-2725673

PATIENT

DRUGS (5)
  1. FAVIPIRAVIR [Suspect]
     Active Substance: FAVIPIRAVIR
     Dosage: FOR 9 DAYS
     Route: 048
  2. FAVIPIRAVIR [Suspect]
     Active Substance: FAVIPIRAVIR
     Dosage: STAGE 2, ON DAY 1
     Route: 048
  3. OSELTAMIVIR [Suspect]
     Active Substance: OSELTAMIVIR
     Indication: INFLUENZA
     Route: 065
  4. FAVIPIRAVIR [Suspect]
     Active Substance: FAVIPIRAVIR
     Dosage: STAGE 2, FOR 9 DAYS
     Route: 048
  5. FAVIPIRAVIR [Suspect]
     Active Substance: FAVIPIRAVIR
     Indication: INFLUENZA
     Dosage: ON DAY 1 STAGE 1
     Route: 048

REACTIONS (13)
  - Bacterial infection [Unknown]
  - Delirium [Unknown]
  - Septic shock [Unknown]
  - Gastrointestinal haemorrhage [Unknown]
  - Acute hepatic failure [Unknown]
  - Liver injury [Unknown]
  - Deep vein thrombosis [Unknown]
  - Acute kidney injury [Unknown]
  - Acute myocardial infarction [Unknown]
  - Thrombocytopenia [Unknown]
  - Cardiac failure acute [Unknown]
  - Pulmonary embolism [Unknown]
  - Respiratory failure [Unknown]
